FAERS Safety Report 11840164 (Version 1)
Quarter: 2015Q4

REPORT INFORMATION
  Report Type: Spontaneous
  Country: IT (occurrence: IT)
  Receive Date: 20151216
  Receipt Date: 20151216
  Transmission Date: 20160305
  Serious: Yes (Other)
  Sender: FDA-Public Use
  Company Number: IT-BAYER-2015-459632

PATIENT
  Sex: Male
  Weight: 84 kg

DRUGS (6)
  1. KOGENATE [Suspect]
     Active Substance: ANTIHEMOPHILIC FACTOR, HUMAN RECOMBINANT
     Indication: HAEMORRHAGE PROPHYLAXIS
     Dosage: 2000 IU, FREQUENCY: CYCLIC
     Dates: start: 20150301, end: 20150516
  2. KOGENATE [Suspect]
     Active Substance: ANTIHEMOPHILIC FACTOR, HUMAN RECOMBINANT
     Indication: HAEMORRHAGE PROPHYLAXIS
     Dosage: 2000 IU, FREQUENCY: CYCLIC
     Dates: start: 20150301, end: 20150516
  3. KOGENATE [Suspect]
     Active Substance: ANTIHEMOPHILIC FACTOR, HUMAN RECOMBINANT
     Indication: HAEMORRHAGE PROPHYLAXIS
     Dosage: 2000 IU, FREQUENCY: CYCLIC
     Dates: start: 20150301, end: 20150516
  4. KOGENATE [Suspect]
     Active Substance: ANTIHEMOPHILIC FACTOR, HUMAN RECOMBINANT
     Indication: HAEMORRHAGE PROPHYLAXIS
     Dosage: 2000 IU, FREQUENCY: CYCLIC
     Dates: start: 20150301, end: 20150516
  5. KOGENATE [Suspect]
     Active Substance: ANTIHEMOPHILIC FACTOR, HUMAN RECOMBINANT
     Indication: HAEMORRHAGE PROPHYLAXIS
     Dosage: 2000 IU, FREQUENCY: CYCLIC
     Dates: start: 20150301, end: 20150516
  6. KOGENATE [Suspect]
     Active Substance: ANTIHEMOPHILIC FACTOR, HUMAN RECOMBINANT
     Indication: HAEMORRHAGE PROPHYLAXIS
     Dosage: 2000 IU, FREQUENCY: CYCLIC
     Dates: start: 20150301, end: 20150516

REACTIONS (4)
  - Hyperhidrosis [Recovered/Resolved]
  - Hypotension [Recovered/Resolved]
  - Feeling hot [Recovered/Resolved]
  - Tachycardia [Recovered/Resolved]
